FAERS Safety Report 17821450 (Version 1)
Quarter: 2020Q2

REPORT INFORMATION
  Report Type: Report from Study
  Country: MX (occurrence: MX)
  Receive Date: 20200525
  Receipt Date: 20200525
  Transmission Date: 20200714
  Serious: Yes (Other)
  Sender: FDA-Public Use
  Company Number: NVSC2020MX142172

PATIENT
  Sex: Male
  Weight: 16 kg

DRUGS (7)
  1. TOPIRAMATO [Concomitant]
     Active Substance: TOPIRAMATE
     Indication: PRODUCT USED FOR UNKNOWN INDICATION
     Dosage: 1 DF, QD (100 MG)
     Route: 048
  2. AFINITOR [Suspect]
     Active Substance: EVEROLIMUS
     Indication: TUBEROUS SCLEROSIS COMPLEX
     Dosage: 0.1 DF, QD (0.05 MG IN 5 MG TABLET)
     Route: 048
     Dates: start: 20150821
  3. AFINITOR [Suspect]
     Active Substance: EVEROLIMUS
     Dosage: 0.25 DF, QD (1 MG, IN 5 MG TABLET)
     Route: 048
  4. AFINITOR [Suspect]
     Active Substance: EVEROLIMUS
     Dosage: 0.5 DF, QD (2.5 MG IN 5 MG TABLET)
     Route: 048
  5. AFINITOR [Suspect]
     Active Substance: EVEROLIMUS
     Dosage: 0.3 DF, QD (1.5 MG IN 5 MG TABLET)
     Route: 048
  6. MAGNESIUM VALPROATE [Suspect]
     Active Substance: VALPROATE MAGNESIUM
     Indication: PRODUCT USED FOR UNKNOWN INDICATION
     Dosage: 6 ML, BID (SOLUTION)
     Route: 048
  7. AFINITOR [Suspect]
     Active Substance: EVEROLIMUS
     Dosage: 0.2 DF, QD (0.1MG, 5 MG TABLET)
     Route: 048

REACTIONS (2)
  - Seizure [Unknown]
  - Product prescribing error [Unknown]
